FAERS Safety Report 8450146-6 (Version None)
Quarter: 2012Q2

REPORT INFORMATION
  Report Type: 
  Country: None (occurrence: None)
  Receive Date: 20120613
  Receipt Date: 20120602
  Transmission Date: 20120825
  Serious: Yes (Hospitalization)
  Sender: FDA-Public Use
  Company Number: DSU-2012-04478

PATIENT
  Age: 77 Year
  Sex: Female

DRUGS (7)
  1. BENICAR [Suspect]
     Indication: PRODUCT USED FOR UNKNOWN INDICATION
     Dosage: DOUBLE DOSE
     Dates: start: 20110620, end: 20110622
  2. HYDROCHLOROTHIAZIDE [Suspect]
     Dates: start: 20110620, end: 20110622
  3. METFORMIN HCL [Suspect]
     Indication: TYPE 2 DIABETES MELLITUS
     Dosage: 1000MG
  4. VERAPAMIL [Suspect]
     Indication: PRODUCT USED FOR UNKNOWN INDICATION
     Dates: start: 20110620, end: 20110622
  5. SAXAGLIPTIN (SAXAGLIPTIN) (SAXAGLIPTIN) [Suspect]
     Indication: TYPE 2 DIABETES MELLITUS
     Dates: start: 20100927
  6. ASPIRIN [Concomitant]
  7. LISINOPRIL [Suspect]
     Indication: PRODUCT USED FOR UNKNOWN INDICATION
     Dates: start: 20110620, end: 20110622

REACTIONS (7)
  - VOMITING [None]
  - DIARRHOEA [None]
  - ACCIDENTAL OVERDOSE [None]
  - DECREASED APPETITE [None]
  - HYPOTENSION [None]
  - ASTHENIA [None]
  - NAUSEA [None]
